FAERS Safety Report 4292016-3 (Version None)
Quarter: 2004Q1

REPORT INFORMATION
  Report Type: 
  Country: None (occurrence: None)
  Receive Date: 20040126
  Receipt Date: 20031027
  Transmission Date: 20041129
  Serious: No
  Sender: FDA-Public Use
  Company Number: USA031050870

PATIENT
  Age: 85 Year
  Sex: Female

DRUGS (4)
  1. FORTEO [Suspect]
     Indication: OSTEOPOROSIS
     Dosage: 20 UG/DAY
     Dates: start: 20030101
  2. LANOXIN [Concomitant]
  3. COUMADIN [Concomitant]
  4. MICARDIS [Concomitant]

REACTIONS (1)
  - URINARY INCONTINENCE [None]
